FAERS Safety Report 7522469-6 (Version None)
Quarter: 2011Q2

REPORT INFORMATION
  Report Type: 
  Country: None (occurrence: None)
  Receive Date: 20110603
  Receipt Date: 20110530
  Transmission Date: 20111010
  Serious: Yes (Disabling, Other)
  Sender: FDA-Public Use
  Company Number: IT-ROCHE-773384

PATIENT
  Sex: Female

DRUGS (4)
  1. IBANDRONATE SODIUM [Suspect]
     Route: 065
     Dates: start: 20070816, end: 20090815
  2. FULVESTRANT [Concomitant]
     Dates: start: 20100101
  3. ANASTROZOLE [Suspect]
     Route: 065
     Dates: end: 20090801
  4. ZOMETA [Suspect]
     Route: 042
     Dates: start: 20050701, end: 20070815

REACTIONS (2)
  - CARDIOTOXICITY [None]
  - OSTEONECROSIS OF JAW [None]
